FAERS Safety Report 9797342 (Version 2)
Quarter: 2014Q1

REPORT INFORMATION
  Report Type: Report from Study
  Country: FR (occurrence: FR)
  Receive Date: 20140106
  Receipt Date: 20140106
  Transmission Date: 20141002
  Serious: Yes (Other)
  Sender: FDA-Public Use
  Company Number: PHHY2013FR136384

PATIENT
  Sex: 0

DRUGS (2)
  1. ILARIS [Suspect]
  2. ENCAPSULATED PNEUMOCOCCAL VACCINE [Concomitant]

REACTIONS (2)
  - Nasal congestion [Unknown]
  - Nasal obstruction [Unknown]
